FAERS Safety Report 8551578-8 (Version None)
Quarter: 2012Q3

REPORT INFORMATION
  Report Type: 
  Country: None (occurrence: None)
  Receive Date: 20120730
  Receipt Date: 20120723
  Transmission Date: 20120928
  Serious: Yes (Other)
  Sender: FDA-Public Use
  Company Number: US-BAYER-2012-074554

PATIENT
  Age: 56 Year
  Sex: Female

DRUGS (11)
  1. LEVITRA [Suspect]
     Indication: SCLERODERMA
     Dosage: 20 MG, QD
     Route: 048
     Dates: start: 20100801
  2. LEVITRA [Suspect]
     Indication: DYSPNOEA
  3. NIFEDIPINE [Concomitant]
  4. LEVITRA [Suspect]
     Indication: SKIN ULCER
  5. PROCARDIA [Concomitant]
  6. LEVITRA [Suspect]
     Indication: PAIN
  7. LEVITRA [Suspect]
     Indication: ULCER
  8. MAXZIDE [Concomitant]
  9. LEVITRA [Suspect]
     Indication: FATIGUE
  10. NETYLIN [Concomitant]
  11. OMEPRAZOLE [Concomitant]

REACTIONS (3)
  - LUNG DISORDER [None]
  - PULMONARY HYPERTENSION [None]
  - THERAPEUTIC RESPONSE UNEXPECTED [None]
